FAERS Safety Report 10260618 (Version 24)
Quarter: 2015Q4

REPORT INFORMATION
  Report Type: Report from Study
  Country: CA (occurrence: CA)
  Receive Date: 20140626
  Receipt Date: 20151127
  Transmission Date: 20160304
  Serious: Yes (Other)
  Sender: FDA-Public Use
  Company Number: CA-ROCHE-1109758

PATIENT
  Age: 67 Year
  Sex: Female
  Weight: 57.4 kg

DRUGS (16)
  1. MEVACOR [Concomitant]
     Active Substance: LOVASTATIN
  2. SYNTHROID [Concomitant]
     Active Substance: LEVOTHYROXINE SODIUM
  3. PREDNISONE. [Concomitant]
     Active Substance: PREDNISONE
  4. SOLU-MEDROL [Concomitant]
     Active Substance: METHYLPREDNISOLONE SODIUM SUCCINATE
     Route: 042
     Dates: start: 20090709, end: 20110107
  5. METFORMIN [Concomitant]
     Active Substance: METFORMIN HYDROCHLORIDE
  6. ACTEMRA [Suspect]
     Active Substance: TOCILIZUMAB
     Indication: RHEUMATOID ARTHRITIS
     Route: 042
     Dates: start: 20120202
  7. ACTEMRA [Suspect]
     Active Substance: TOCILIZUMAB
     Route: 042
  8. FOLIC ACID. [Concomitant]
     Active Substance: FOLIC ACID
  9. OXYCODONE HYDROCHLORIDE AND ACETAMINOPHEN [Concomitant]
     Active Substance: ACETAMINOPHEN\OXYCODONE HYDROCHLORIDE
  10. RANITIDINE [Concomitant]
     Active Substance: RANITIDINE\RANITIDINE HYDROCHLORIDE
  11. CELEBREX [Concomitant]
     Active Substance: CELECOXIB
  12. BENADRYL [Concomitant]
     Active Substance: DIPHENHYDRAMINE HYDROCHLORIDE
     Route: 048
     Dates: start: 20090709, end: 20110107
  13. ACTEMRA [Suspect]
     Active Substance: TOCILIZUMAB
     Dosage: ON HOLD
     Route: 042
     Dates: start: 20120321
  14. RITUXAN [Suspect]
     Active Substance: RITUXIMAB
     Indication: RHEUMATOID ARTHRITIS
     Route: 042
     Dates: start: 20090709, end: 20110107
  15. METHOTREXATE [Concomitant]
     Active Substance: METHOTREXATE
  16. TYLENOL [Concomitant]
     Active Substance: ACETAMINOPHEN
     Route: 048
     Dates: start: 20090709, end: 20110107

REACTIONS (27)
  - Blood urine present [Unknown]
  - Pyrexia [Unknown]
  - Nasopharyngitis [Recovered/Resolved]
  - Lower respiratory tract infection [Not Recovered/Not Resolved]
  - Skin fissures [Unknown]
  - Weight decreased [Unknown]
  - Joint swelling [Not Recovered/Not Resolved]
  - Aphthous ulcer [Recovering/Resolving]
  - Fatigue [Recovering/Resolving]
  - Infusion related reaction [Unknown]
  - Headache [Not Recovered/Not Resolved]
  - Chills [Not Recovered/Not Resolved]
  - Sneezing [Not Recovered/Not Resolved]
  - Weight increased [Unknown]
  - Blood pressure increased [Unknown]
  - Joint warmth [Not Recovered/Not Resolved]
  - Cough [Not Recovered/Not Resolved]
  - Poor venous access [Unknown]
  - Drug dose omission [Unknown]
  - Anaemia [Unknown]
  - Impaired healing [Not Recovered/Not Resolved]
  - Fatigue [Unknown]
  - Dry skin [Unknown]
  - Wound [Recovered/Resolved]
  - Hypotension [Not Recovered/Not Resolved]
  - Diarrhoea [Not Recovered/Not Resolved]
  - Arthritis infective [Not Recovered/Not Resolved]

NARRATIVE: CASE EVENT DATE: 20120824
